FAERS Safety Report 4815916-1 (Version None)
Quarter: 2005Q4

REPORT INFORMATION
  Report Type: 
  Country: None (occurrence: None)
  Receive Date: 20051031
  Receipt Date: 20050127
  Transmission Date: 20060501
  Serious: Yes (Hospitalization)
  Sender: FDA-Public Use
  Company Number: DE-SANOFI-SYNTHELABO-A04200500087

PATIENT
  Sex: Male

DRUGS (1)
  1. STILNOX [Suspect]
     Indication: DRUG USE FOR UNKNOWN INDICATION
     Dosage: 7-10 MG/D
     Route: 048

REACTIONS (2)
  - ACUTE STRESS DISORDER [None]
  - FREEZING PHENOMENON [None]
